FAERS Safety Report 15117148 (Version 1)
Quarter: 2018Q3

REPORT INFORMATION
  Report Type: Spontaneous
  Country: US (occurrence: US)
  Receive Date: 20180612
  Receipt Date: 20180612
  Transmission Date: 20181010
  Serious: No
  Sender: FDA-Public Use
  Company Number: None

PATIENT
  Age: 8 Year
  Sex: Female
  Weight: 30.6 kg

DRUGS (4)
  1. VIT D CHEWS [Concomitant]
  2. CONCERTA [Concomitant]
     Active Substance: METHYLPHENIDATE HYDROCHLORIDE
  3. CHILDRENS FLINSTONE CHEWABLE VITAMIN [Concomitant]
  4. CONCERTA GENERIC ? METHYLPHENIDATE HYDROCHLORIDE EXTENDED?RELEASE 27, [Suspect]
     Active Substance: METHYLPHENIDATE HYDROCHLORIDE
     Indication: ATTENTION DEFICIT/HYPERACTIVITY DISORDER
     Dosage: ?          QUANTITY:1 TABLET(S);?
     Route: 048
     Dates: start: 20180609, end: 20180611

REACTIONS (3)
  - Laziness [None]
  - Fatigue [None]
  - Product substitution issue [None]

NARRATIVE: CASE EVENT DATE: 20180609
